FAERS Safety Report 9495322 (Version 1)
Quarter: 2013Q3

REPORT INFORMATION
  Report Type: Spontaneous
  Country: PR (occurrence: PR)
  Receive Date: 20130903
  Receipt Date: 20130903
  Transmission Date: 20140515
  Serious: No
  Sender: FDA-Public Use
  Company Number: PR-BAXTER-2013BAX023453

PATIENT
  Sex: 0

DRUGS (1)
  1. 70% DEXTROSE INJECTION USP [Suspect]
     Indication: PARENTERAL NUTRITION
     Route: 065
     Dates: start: 20120312

REACTIONS (2)
  - Product compounding quality issue [Unknown]
  - Intercepted medication error [Recovered/Resolved]
